FAERS Safety Report 9242541 (Version 2)
Quarter: 2013Q2

REPORT INFORMATION
  Report Type: Spontaneous
  Country: IT (occurrence: IT)
  Receive Date: 20130419
  Receipt Date: 20130628
  Transmission Date: 20140414
  Serious: Yes (Hospitalization)
  Sender: FDA-Public Use
  Company Number: IT-ELI_LILLY_AND_COMPANY-IT201304003981

PATIENT
  Age: 48 Year
  Sex: Female

DRUGS (4)
  1. HUMALOG LISPRO [Suspect]
     Indication: TYPE 1 DIABETES MELLITUS
     Dosage: 13 IU, QD
     Dates: start: 20100301, end: 20130412
  2. LANTUS [Concomitant]
     Indication: TYPE 1 DIABETES MELLITUS
     Dosage: 16 IU, QD
     Route: 058
     Dates: start: 20100301, end: 20130412
  3. LESCOL [Concomitant]
     Indication: HYPERCHOLESTEROLAEMIA
     Dosage: 80 MG, UNK
     Route: 048
  4. KARVEZIDE [Concomitant]
     Indication: HYPERTENSION
     Dosage: 150 MG/12.5 MG
     Route: 048

REACTIONS (2)
  - Hypoglycaemia [Recovered/Resolved]
  - Agitation [Recovered/Resolved]
